FAERS Safety Report 20393887 (Version 1)
Quarter: 2022Q1

REPORT INFORMATION
  Report Type: Report from Study
  Country: RO (occurrence: RO)
  Receive Date: 20220129
  Receipt Date: 20220129
  Transmission Date: 20220423
  Serious: Yes (Death)
  Sender: FDA-Public Use
  Company Number: RO-ABBVIE-22K-135-4255815-00

PATIENT
  Age: 76 Year
  Sex: Male

DRUGS (2)
  1. CARBIDOPA\LEVODOPA [Suspect]
     Active Substance: CARBIDOPA\LEVODOPA
     Indication: Parkinson^s disease
     Dosage: DM=13.50 DC=8.00 ED=4.50 NRED=6; DMN=0.00 DCN=5.00 EDN=5.00 NREDN=3
     Route: 050
     Dates: start: 20121022, end: 20220126
  2. CARBIDOPA\LEVODOPA [Suspect]
     Active Substance: CARBIDOPA\LEVODOPA

REACTIONS (4)
  - Dyspnoea [Fatal]
  - Myocardial infarction [Fatal]
  - Abdominal pain [Fatal]
  - Chest pain [Fatal]

NARRATIVE: CASE EVENT DATE: 20220126
